FAERS Safety Report 24903678 (Version 1)
Quarter: 2025Q1

REPORT INFORMATION
  Report Type: Spontaneous
  Country: CA (occurrence: CA)
  Receive Date: 20250130
  Receipt Date: 20250130
  Transmission Date: 20250409
  Serious: Yes (Other)
  Sender: REGENERON
  Company Number: CA-SANOFI-02385627

PATIENT
  Sex: Male

DRUGS (2)
  1. PRALUENT [Suspect]
     Active Substance: ALIROCUMAB
     Indication: Blood cholesterol
     Dosage: 75 MG QOW
     Dates: start: 202407
  2. REPATHA [Suspect]
     Active Substance: EVOLOCUMAB
     Indication: Product used for unknown indication

REACTIONS (8)
  - Cataract [Unknown]
  - Asthenia [Unknown]
  - Balance disorder [Unknown]
  - Headache [Unknown]
  - Brain fog [Unknown]
  - Disturbance in attention [Unknown]
  - Rash [Unknown]
  - Influenza like illness [Unknown]
